FAERS Safety Report 15125796 (Version 1)
Quarter: 2018Q3

REPORT INFORMATION
  Report Type: Report from Study
  Country: FR (occurrence: FR)
  Receive Date: 20180710
  Receipt Date: 20180710
  Transmission Date: 20181010
  Serious: Yes (Other)
  Sender: FDA-Public Use
  Company Number: FR-TAKEDA-2018TUS021466

PATIENT
  Age: 40 Year
  Sex: Female
  Weight: 58 kg

DRUGS (2)
  1. BRIGATINIB [Suspect]
     Active Substance: BRIGATINIB
     Indication: NON-SMALL CELL LUNG CANCER
     Dosage: 180 MG, QD
     Route: 065
     Dates: start: 20171226
  2. BRIGATINIB [Suspect]
     Active Substance: BRIGATINIB
     Indication: METASTASES TO CENTRAL NERVOUS SYSTEM

REACTIONS (3)
  - Metastases to central nervous system [Not Recovered/Not Resolved]
  - Off label use [Unknown]
  - Overdose [Unknown]
